FAERS Safety Report 8327501-8 (Version None)
Quarter: 2012Q2

REPORT INFORMATION
  Report Type: 
  Country: None (occurrence: None)
  Receive Date: 20120430
  Receipt Date: 20120423
  Transmission Date: 20120825
  Serious: Yes (Death)
  Sender: FDA-Public Use
  Company Number: DSA_56257_2012

PATIENT
  Sex: Male

DRUGS (1)
  1. ELIDEL [Suspect]
     Indication: PRODUCT USED FOR UNKNOWN INDICATION
     Dosage: (DF TOPICAL)
     Route: 061

REACTIONS (3)
  - ARRHYTHMIA [None]
  - CARDIOMYOPATHY [None]
  - ASTHMA [None]
